FAERS Safety Report 22918562 (Version 5)
Quarter: 2024Q1

REPORT INFORMATION
  Report Type: Spontaneous
  Country: US (occurrence: US)
  Receive Date: 20230907
  Receipt Date: 20240322
  Transmission Date: 20240409
  Serious: Yes (Other)
  Sender: FDA-Public Use
  Company Number: US-PFIZER INC-PV202300066722

PATIENT
  Age: 18 Year
  Sex: Male
  Weight: 68.027 kg

DRUGS (2)
  1. BENEFIX [Suspect]
     Active Substance: COAGULATION FACTOR IX RECOMBINANT HUMAN\ISOPROPYL ALCOHOL
     Indication: Haemorrhage
     Dosage: 6800 IU (+/-10%) = 100 IU / KG X 1 DAILY ON DEMAND FOR A BLEED
  2. BENEFIX [Suspect]
     Active Substance: COAGULATION FACTOR IX RECOMBINANT HUMAN\ISOPROPYL ALCOHOL
     Dosage: 7300 IU (+/-10%) = 100 IU / KG X 1 DAILY ON DEMAND FOR A BLEED

REACTIONS (3)
  - Haemarthrosis [Unknown]
  - Contusion [Unknown]
  - Haemarthrosis [Unknown]
